FAERS Safety Report 5133014-7 (Version None)
Quarter: 2006Q4

REPORT INFORMATION
  Report Type: 
  Country: None (occurrence: None)
  Receive Date: 20061017
  Receipt Date: 20060913
  Transmission Date: 20070319
  Serious: Yes (Hospitalization, Other)
  Sender: FDA-Public Use
  Company Number: RB-3790-2006

PATIENT
  Age: 51 Year
  Sex: Female
  Weight: 66 kg

DRUGS (3)
  1. SUBOXONE [Suspect]
     Indication: DRUG USE FOR UNKNOWN INDICATION
     Dosage: TABLET 3 DF, 1.5 DF QOD, SUBLINGUAL
     Route: 060
  2. EFFEXOR XR [Concomitant]
  3. SEROQUEL [Concomitant]

REACTIONS (1)
  - GRAND MAL CONVULSION [None]
